FAERS Safety Report 6090556-8 (Version None)
Quarter: 2009Q1

REPORT INFORMATION
  Report Type: 
  Country: None (occurrence: None)
  Receive Date: 20090224
  Receipt Date: 20090116
  Transmission Date: 20090719
  Serious: No
  Sender: FDA-Public Use
  Company Number: US-ABBOTT-09P-163-0498502-00

PATIENT
  Sex: Female

DRUGS (16)
  1. SIMCOR [Suspect]
     Indication: BLOOD CHOLESTEROL INCREASED
     Dosage: 500/20MG 1 IN 1 DAY TAKEN AT NIGHT
     Route: 048
     Dates: start: 20080901
  2. CELEBREX [Concomitant]
     Indication: DRUG USE FOR UNKNOWN INDICATION
  3. LASIX [Concomitant]
     Indication: DRUG USE FOR UNKNOWN INDICATION
  4. CRESTOR [Concomitant]
     Indication: DRUG USE FOR UNKNOWN INDICATION
  5. PREVACID [Concomitant]
     Indication: DRUG USE FOR UNKNOWN INDICATION
  6. VIT E [Concomitant]
     Indication: DRUG USE FOR UNKNOWN INDICATION
  7. CYCLOBENZAPRINE [Concomitant]
     Indication: DRUG USE FOR UNKNOWN INDICATION
  8. POTASSIUM CHLORIDE [Concomitant]
     Indication: DRUG USE FOR UNKNOWN INDICATION
  9. METOCLOPRAMIDE [Concomitant]
     Indication: DRUG USE FOR UNKNOWN INDICATION
  10. PLAVIX [Concomitant]
     Indication: DRUG USE FOR UNKNOWN INDICATION
  11. CARBETALOL [Concomitant]
     Indication: DRUG USE FOR UNKNOWN INDICATION
  12. ASPIRIN [Concomitant]
     Indication: DRUG USE FOR UNKNOWN INDICATION
  13. METOLAZONE [Concomitant]
     Indication: DRUG USE FOR UNKNOWN INDICATION
  14. COLCHICINE [Concomitant]
     Indication: DRUG USE FOR UNKNOWN INDICATION
  15. VITAMINS [Concomitant]
     Indication: DRUG USE FOR UNKNOWN INDICATION
  16. OSCAL [Concomitant]
     Indication: DRUG USE FOR UNKNOWN INDICATION

REACTIONS (1)
  - FLUSHING [None]
